FAERS Safety Report 5389296-X (Version None)
Quarter: 2007Q3

REPORT INFORMATION
  Report Type: 
  Country: None (occurrence: None)
  Receive Date: 20070713
  Receipt Date: 20070702
  Transmission Date: 20080115
  Serious: Yes (Death)
  Sender: FDA-Public Use
  Company Number: POMP-11111

PATIENT
  Age: 50 Week
  Sex: Male

DRUGS (2)
  1. MYOZYME [Suspect]
     Indication: GLYCOGEN STORAGE DISEASE TYPE II
     Dosage: 150 MG ONCE IV
     Route: 042
     Dates: start: 20060620, end: 20070620
  2. MYOZYME [Suspect]
     Indication: GLYCOGEN STORAGE DISEASE TYPE II
     Dosage: 100 MG Q2WKS IV
     Route: 042
     Dates: start: 20061101, end: 20070606

REACTIONS (2)
  - PNEUMONIA [None]
  - RESPIRATORY ARREST [None]
